FAERS Safety Report 20767513 (Version 2)
Quarter: 2022Q2

REPORT INFORMATION
  Report Type: Spontaneous
  Country: US (occurrence: US)
  Receive Date: 20220429
  Receipt Date: 20220520
  Transmission Date: 20220720
  Serious: No
  Sender: FDA-Public Use
  Company Number: US-SANOFI-01078967

PATIENT
  Sex: Female

DRUGS (1)
  1. DUPIXENT [Suspect]
     Active Substance: DUPILUMAB
     Indication: Chronic rhinosinusitis with nasal polyps
     Dosage: 300MG
     Dates: start: 20211105, end: 20220128

REACTIONS (4)
  - Disease progression [Unknown]
  - Injection site urticaria [Unknown]
  - Injection site bruising [Unknown]
  - Injection site erythema [Unknown]

NARRATIVE: CASE EVENT DATE: 20211203
